FAERS Safety Report 6106700-X (Version None)
Quarter: 2009Q1

REPORT INFORMATION
  Report Type: 
  Country: None (occurrence: None)
  Receive Date: 20090305
  Receipt Date: 20090223
  Transmission Date: 20090719
  Serious: Yes (Hospitalization)
  Sender: FDA-Public Use
  Company Number: 2009AP000667

PATIENT
  Age: 55 Year
  Sex: Male

DRUGS (4)
  1. ALLOPURIONOL [Suspect]
     Dosage: 100 MG; QD, 100 MG; QW, 300 MG; QD
  2. TERBINAFINE HCL [Concomitant]
  3. LISINOPRIL [Concomitant]
  4. CIPROFLOXACIN [Concomitant]

REACTIONS (17)
  - ALANINE AMINOTRANSFERASE INCREASED [None]
  - ASPARTATE AMINOTRANSFERASE INCREASED [None]
  - BLOOD ALKALINE PHOSPHATASE INCREASED [None]
  - BLOOD CREATININE INCREASED [None]
  - BLOOD SODIUM DECREASED [None]
  - DERMATITIS EXFOLIATIVE [None]
  - DRUG RASH WITH EOSINOPHILIA AND SYSTEMIC SYMPTOMS [None]
  - EOSINOPHILIA [None]
  - FATIGUE [None]
  - HAEMODIALYSIS [None]
  - LIVER FUNCTION TEST ABNORMAL [None]
  - MARROW HYPERPLASIA [None]
  - OROPHARYNGEAL PAIN [None]
  - PAIN IN EXTREMITY [None]
  - PSEUDOLYMPHOMA [None]
  - PYREXIA [None]
  - RENAL IMPAIRMENT [None]
